FAERS Safety Report 6517509-7 (Version None)
Quarter: 2009Q4

REPORT INFORMATION
  Report Type: 
  Country: None (occurrence: None)
  Receive Date: 20091224
  Receipt Date: 20091216
  Transmission Date: 20100525
  Serious: Yes (Other)
  Sender: FDA-Public Use
  Company Number: GXKR2009GB13539

PATIENT
  Age: 82 Year
  Sex: Female

DRUGS (5)
  1. WARFARIN (NGX) [Suspect]
     Route: 065
  2. COVONIA BRONCHIAL BALSAM [Interacting]
     Route: 048
  3. AMLODIPINE [Concomitant]
     Route: 065
  4. OMEPRAZOLE [Concomitant]
     Route: 065
  5. SIMVASTATIN [Concomitant]
     Route: 065

REACTIONS (2)
  - DRUG INTERACTION [None]
  - INTERNATIONAL NORMALISED RATIO INCREASED [None]
